FAERS Safety Report 8874263 (Version 1)
Quarter: 2012Q4

REPORT INFORMATION
  Report Type: 
  Country: US (occurrence: US)
  Receive Date: 20121023
  Receipt Date: 20121023
  Transmission Date: 20130627
  Serious: No
  Sender: FDA-Public Use
  Company Number: US-VERTEX PHARMACEUTICAL INC.-2012-023341

PATIENT
  Age: 58 Year
  Sex: Female
  Weight: 49 kg

DRUGS (3)
  1. VX-950 [Suspect]
     Indication: HEPATITIS C
     Dosage: 750 mg, tid
     Route: 048
  2. PEGASYS [Concomitant]
     Indication: HEPATITIS C
     Dosage: 180MCG/M
  3. RIBAPAK [Concomitant]
     Indication: HEPATITIS C
     Dosage: 800 mg, qd

REACTIONS (8)
  - Pain [Unknown]
  - Decreased appetite [Unknown]
  - Stomatitis [Unknown]
  - Weight decreased [Unknown]
  - Asthenia [Unknown]
  - Anaemia [Unknown]
  - Retching [Unknown]
  - Vomiting [Unknown]
